FAERS Safety Report 25433369 (Version 1)
Quarter: 2025Q2

REPORT INFORMATION
  Report Type: Spontaneous
  Country: GB (occurrence: GB)
  Receive Date: 20250613
  Receipt Date: 20250613
  Transmission Date: 20250716
  Serious: Yes (Disabling)
  Sender: ELI LILLY AND COMPANY
  Company Number: None

PATIENT
  Age: 24 Year
  Weight: 77 kg

DRUGS (3)
  1. MOUNJARO [Suspect]
     Active Substance: TIRZEPATIDE
     Indication: Product used for unknown indication
     Route: 065
  2. PREGABALIN [Concomitant]
     Active Substance: PREGABALIN
     Indication: Complex regional pain syndrome
  3. VORTIOXETINE [Concomitant]
     Active Substance: VORTIOXETINE
     Indication: Borderline personality disorder

REACTIONS (1)
  - Illness [Not Recovered/Not Resolved]
